FAERS Safety Report 13335548 (Version 2)
Quarter: 2017Q1

REPORT INFORMATION
  Report Type: Spontaneous
  Country: TR (occurrence: TR)
  Receive Date: 20170315
  Receipt Date: 20170322
  Transmission Date: 20170428
  Serious: Yes (Other)
  Sender: FDA-Public Use
  Company Number: TR-UCBSA-2017009291

PATIENT
  Sex: Female
  Weight: 78 kg

DRUGS (5)
  1. CARBAMAZEPIN [Concomitant]
     Active Substance: CARBAMAZEPINE
     Indication: EPILEPSY
     Dosage: 400 MG, 3X/DAY (TID)
     Dates: start: 2009
  2. LACOSAMIDE. [Concomitant]
     Active Substance: LACOSAMIDE
     Indication: EPILEPSY
     Dosage: 200 MG, 2X/DAY (BID)
     Dates: start: 20160111
  3. DONEPEZIL. [Concomitant]
     Active Substance: DONEPEZIL
     Indication: PANIC DISORDER
     Dosage: 40 MG, ONCE DAILY (QD)
     Dates: end: 20170213
  4. KEPPRA [Suspect]
     Active Substance: LEVETIRACETAM
     Indication: EPILEPSY
     Dosage: 1000 MG, 3X/DAY (TID)
  5. PREGABALIN. [Concomitant]
     Active Substance: PREGABALIN
     Indication: EPILEPSY
     Dosage: 150 MG, 2X/DAY (BID)
     Dates: start: 20140818

REACTIONS (4)
  - Off label use [Unknown]
  - Pregnancy on contraceptive [Recovered/Resolved]
  - Abortion [Unknown]
  - Pregnancy [Unknown]

NARRATIVE: CASE EVENT DATE: 20161224
